FAERS Safety Report 6510505-5 (Version None)
Quarter: 2009Q4

REPORT INFORMATION
  Report Type: 
  Country: None (occurrence: None)
  Receive Date: 20091222
  Receipt Date: 20091217
  Transmission Date: 20100525
  Serious: Yes (Hospitalization)
  Sender: FDA-Public Use
  Company Number: US-MERCK-0907USA00161

PATIENT
  Age: 54 Year
  Sex: Female
  Weight: 107 kg

DRUGS (6)
  1. FOSAMAX [Suspect]
     Indication: OSTEOPENIA
     Route: 048
     Dates: start: 20040129, end: 20080601
  2. [THERAPY UNSPECIFIED] [Concomitant]
     Indication: HYPERTENSION
     Route: 065
     Dates: start: 19990206
  3. SINGULAIR [Concomitant]
     Indication: ASTHMA
     Route: 065
     Dates: start: 19990101
  4. AMBIEN [Concomitant]
     Route: 065
     Dates: start: 19960101
  5. RESTORIL [Concomitant]
     Route: 065
     Dates: start: 19960101
  6. CORTICOSTEROIDS (UNSPECIFIED) [Concomitant]
     Route: 065
     Dates: start: 19840101, end: 20070101

REACTIONS (15)
  - ANXIETY [None]
  - ASTHMA [None]
  - CONTUSION [None]
  - DEPRESSION [None]
  - DEVICE FAILURE [None]
  - FALL [None]
  - FOOT DEFORMITY [None]
  - HERPES ZOSTER [None]
  - JOINT INJURY [None]
  - JOINT RANGE OF MOTION DECREASED [None]
  - OEDEMA PERIPHERAL [None]
  - ORAL INFECTION [None]
  - PANIC REACTION [None]
  - STRESS [None]
  - SUBCUTANEOUS ABSCESS [None]
